FAERS Safety Report 5706952-1 (Version None)
Quarter: 2008Q2

REPORT INFORMATION
  Report Type: 
  Country: None (occurrence: None)
  Receive Date: 20080416
  Receipt Date: 20080402
  Transmission Date: 20081010
  Serious: Yes (Other)
  Sender: FDA-Public Use
  Company Number: CH-AMGEN-UK269845

PATIENT
  Sex: Male
  Weight: 90 kg

DRUGS (10)
  1. MIMPARA [Suspect]
     Indication: HYPERPARATHYROIDISM SECONDARY
     Route: 048
     Dates: start: 20080212, end: 20080327
  2. SERTRALINE [Concomitant]
     Route: 065
     Dates: start: 20060130, end: 20080306
  3. HEPATITIS B VACCINE [Concomitant]
     Route: 065
     Dates: start: 20080226
  4. ATACAND [Concomitant]
     Route: 065
     Dates: start: 20050603
  5. CARVEDILOL [Concomitant]
     Route: 065
     Dates: start: 20050128
  6. ZURCAL [Concomitant]
     Route: 065
     Dates: start: 20050525
  7. TOREM [Concomitant]
     Route: 065
     Dates: start: 20050103
  8. PRAVASTATIN [Concomitant]
     Route: 065
     Dates: start: 20050610
  9. CALCIUM ACETATE [Concomitant]
     Route: 065
     Dates: start: 20050103
  10. CALCITRIOL [Concomitant]
     Route: 065
     Dates: end: 20080212

REACTIONS (3)
  - ALANINE AMINOTRANSFERASE INCREASED [None]
  - ASPARTATE AMINOTRANSFERASE INCREASED [None]
  - GAMMA-GLUTAMYLTRANSFERASE INCREASED [None]
